FAERS Safety Report 9876075 (Version 4)
Quarter: 2014Q2

REPORT INFORMATION
  Report Type: Spontaneous
  Country: IT (occurrence: None)
  Receive Date: 20140204
  Receipt Date: 20140407
  Transmission Date: 20141212
  Serious: Yes (Hospitalization, Other)
  Sender: FDA-Public Use
  Company Number: 2014IT002992

PATIENT
  Age: 61 Year
  Sex: Male
  Weight: 91.9 kg

DRUGS (6)
  1. PONATINIB [Suspect]
     Indication: CHRONIC MYELOID LEUKAEMIA
     Route: 048
     Dates: start: 20110621, end: 20140109
  2. ACETYLSALICYLIC ACID (ACETYSALICYLIC ACID [Concomitant]
  3. ROSUVASTATINE (ROSUVASTATIN CALCIUM) [Concomitant]
  4. SULODEXIDE (SULODEXIDE) [Concomitant]
  5. CANDESARTAN CILEXETIL [Concomitant]
  6. COMBIGAN (BRIMONIDINE TARTRATE, TIMOLOL MALEATE) [Concomitant]

REACTIONS (9)
  - Elective surgery [None]
  - Peripheral vascular disorder [None]
  - Peripheral ischaemia [None]
  - Peripheral artery stenosis [None]
  - Femoral artery occlusion [None]
  - Intermittent claudication [None]
  - Aortic thrombosis [None]
  - Embolism arterial [None]
  - Arterial thrombosis [None]
